FAERS Safety Report 4696260-2 (Version None)
Quarter: 2005Q2

REPORT INFORMATION
  Report Type: 
  Country: None (occurrence: None)
  Receive Date: 20050621
  Receipt Date: 20050613
  Transmission Date: 20051028
  Serious: Yes (Hospitalization)
  Sender: FDA-Public Use
  Company Number: 05-06-1027

PATIENT
  Age: 54 Year
  Sex: Male

DRUGS (1)
  1. CLOZAPINE [Suspect]
     Indication: SCHIZOAFFECTIVE DISORDER
     Dosage: 225-300MG QD ORAL
     Route: 048
     Dates: start: 20001201

REACTIONS (5)
  - ABDOMINAL PAIN LOWER [None]
  - FLUID INTAKE REDUCED [None]
  - MOANING [None]
  - ORAL INTAKE REDUCED [None]
  - RENAL COLIC [None]
